FAERS Safety Report 12679080 (Version 7)
Quarter: 2020Q3

REPORT INFORMATION
  Report Type: Report from Study
  Country: CN (occurrence: CN)
  Receive Date: 20160824
  Receipt Date: 20180213
  Transmission Date: 20201105
  Serious: Yes (Death, Hospitalization)
  Sender: FDA-Public Use
  Company Number: CN-ACTELION-A-CH2016-140893

PATIENT
  Age: 21 Year
  Sex: Male
  Weight: 79 kg

DRUGS (7)
  1. MACITENTAN [Suspect]
     Active Substance: MACITENTAN
     Indication: PULMONARY ARTERIAL HYPERTENSION
     Dosage: 10 MG, QD
     Route: 048
     Dates: start: 20120203, end: 20180112
  2. FUROSEMIDE. [Concomitant]
     Active Substance: FUROSEMIDE
     Dosage: UNK
     Dates: start: 20141216
  3. SPIRONOLACTONE. [Concomitant]
     Active Substance: SPIRONOLACTONE
     Dosage: UNK
     Dates: start: 20141216
  4. MACITENTAN [Suspect]
     Active Substance: MACITENTAN
     Indication: PULMONARY ARTERIAL HYPERTENSION
     Dosage: 10 MG, QD
     Route: 048
     Dates: start: 20120203, end: 20180112
  5. DIGOXIN. [Concomitant]
     Active Substance: DIGOXIN
     Dosage: UNK
     Dates: start: 20100211
  6. POTASSIUM CHLORIDE. [Concomitant]
     Active Substance: POTASSIUM CHLORIDE
     Dosage: UNK
     Dates: start: 20130725
  7. SILDENAFIL. [Concomitant]
     Active Substance: SILDENAFIL
     Dosage: UNK
     Dates: start: 20100211

REACTIONS (15)
  - Gamma-glutamyltransferase increased [Unknown]
  - Blood albumin decreased [Recovered/Resolved]
  - Condition aggravated [Fatal]
  - Oedema peripheral [Fatal]
  - Dyspnoea [Fatal]
  - Chest discomfort [Fatal]
  - Prothrombin time prolonged [Unknown]
  - Cyanosis [Fatal]
  - Hyperbilirubinaemia [Not Recovered/Not Resolved]
  - Decreased activity [Fatal]
  - International normalised ratio increased [Unknown]
  - Right ventricular failure [Fatal]
  - Blood alkaline phosphatase increased [Unknown]
  - Weight decreased [Fatal]
  - Pulmonary arterial hypertension [Fatal]

NARRATIVE: CASE EVENT DATE: 20120801
